FAERS Safety Report 5673232-2 (Version None)
Quarter: 2008Q2

REPORT INFORMATION
  Report Type: 
  Country: None (occurrence: None)
  Receive Date: 20080219
  Receipt Date: 20071211
  Transmission Date: 20081010
  Serious: No
  Sender: FDA-Public Use
  Company Number: TPA2007A02397

PATIENT
  Age: 31 Year
  Sex: Female
  Weight: 87.0906 kg

DRUGS (3)
  1. ROZEREM [Suspect]
     Indication: INSOMNIA
     Dosage: 8 MG, QHS PRN, PER ORAL
     Route: 048
     Dates: start: 20071031, end: 20071121
  2. REQUIP [Concomitant]
  3. LEXAPRO [Concomitant]

REACTIONS (1)
  - DRUG SCREEN POSITIVE [None]
